FAERS Safety Report 10194851 (Version 1)
Quarter: 2014Q2

REPORT INFORMATION
  Report Type: Spontaneous
  Country: US (occurrence: US)
  Receive Date: 20140526
  Receipt Date: 20140526
  Transmission Date: 20141212
  Serious: No
  Sender: FDA-Public Use
  Company Number: US-009507513-1405USA000960

PATIENT
  Age: 51 Year
  Sex: Male

DRUGS (3)
  1. PEGINTRON [Suspect]
     Indication: HEPATITIS C
     Dosage: 0.5 ML, ONCE A WEEK ON TUESDAY
     Route: 058
     Dates: start: 20140415
  2. REBETOL [Suspect]
     Indication: HEPATITIS C
     Route: 048
  3. SOVALDI [Concomitant]

REACTIONS (2)
  - Pyrexia [Recovered/Resolved]
  - Wrong technique in drug usage process [Unknown]
